FAERS Safety Report 4323276-8 (Version None)
Quarter: 2004Q1

REPORT INFORMATION
  Report Type: 
  Country: None (occurrence: None)
  Receive Date: 20040323
  Receipt Date: 20040119
  Transmission Date: 20041129
  Serious: No
  Sender: FDA-Public Use
  Company Number: M04-341-016

PATIENT
  Age: 51 Year
  Sex: Male
  Weight: 93 kg

DRUGS (7)
  1. VELCADE [Suspect]
     Indication: MULTIPLE MYELOMA
     Dosage: 1.3MG/M2: INTRAVENOUS
     Route: 042
     Dates: start: 20031110
  2. ALOXI (PALONOSETRON) [Concomitant]
  3. ANZEMET (DOLASETRON MESILATE) [Concomitant]
  4. DEXAMETHASONE [Concomitant]
  5. EMEND [Concomitant]
  6. OXYCODONE [Concomitant]
  7. ZOMETA [Concomitant]

REACTIONS (3)
  - ABDOMINAL PAIN [None]
  - NAUSEA [None]
  - VOMITING [None]
